FAERS Safety Report 9833632 (Version 1)
Quarter: 2014Q1

REPORT INFORMATION
  Report Type: Spontaneous
  Country: US (occurrence: US)
  Receive Date: 20140122
  Receipt Date: 20140122
  Transmission Date: 20141002
  Serious: No
  Sender: FDA-Public Use
  Company Number: US-BIOGENIDEC-2014BI006045

PATIENT
  Sex: Female

DRUGS (1)
  1. TYSABRI [Suspect]
     Indication: MULTIPLE SCLEROSIS
     Route: 042
     Dates: start: 20080226

REACTIONS (9)
  - Tremor [Recovered/Resolved]
  - Crying [Recovered/Resolved]
  - Incontinence [Recovered/Resolved]
  - Memory impairment [Recovered/Resolved]
  - Dysphagia [Recovered/Resolved]
  - Dysarthria [Recovered/Resolved]
  - Speech disorder [Recovered/Resolved]
  - Poor venous access [Recovered/Resolved]
  - Multiple sclerosis relapse [Recovered/Resolved]
